FAERS Safety Report 21172515 (Version 1)
Quarter: 2022Q3

REPORT INFORMATION
  Report Type: Spontaneous
  Country: US (occurrence: US)
  Receive Date: 20220804
  Receipt Date: 20220804
  Transmission Date: 20221026
  Serious: Yes (Life-Threatening, Hospitalization)
  Sender: FDA-Public Use
  Company Number: US-MYLANLABS-2022M1083652

PATIENT
  Age: 53 Year
  Sex: Male

DRUGS (8)
  1. METOPROLOL [Suspect]
     Active Substance: METOPROLOL
     Indication: Ventricular fibrillation
     Dosage: UNK
     Route: 040
  2. AMIODARONE [Suspect]
     Active Substance: AMIODARONE
     Indication: Ventricular fibrillation
     Dosage: UNK (CONTINUOUS INFUSION)
     Route: 065
  3. LIDOCAINE [Suspect]
     Active Substance: LIDOCAINE
     Indication: Ventricular fibrillation
     Dosage: UNK (CONTINUOUS INFUSION)
     Route: 065
  4. FENTANYL [Suspect]
     Active Substance: FENTANYL
     Indication: Ventricular fibrillation
     Dosage: UNK
     Route: 065
  5. FENTANYL [Suspect]
     Active Substance: FENTANYL
     Indication: General anaesthesia
  6. PROCAINAMIDE HYDROCHLORIDE [Suspect]
     Active Substance: PROCAINAMIDE HYDROCHLORIDE
     Indication: Ventricular fibrillation
     Dosage: UNK (CONTINUOUS INFUSION)
     Route: 065
  7. PROPOFOL [Suspect]
     Active Substance: PROPOFOL
     Indication: Ventricular fibrillation
     Dosage: UNK
     Route: 065
  8. PROPOFOL [Suspect]
     Active Substance: PROPOFOL
     Indication: General anaesthesia

REACTIONS (2)
  - Drug ineffective [Unknown]
  - Off label use [Unknown]
